FAERS Safety Report 5891586-9 (Version None)
Quarter: 2008Q3

REPORT INFORMATION
  Report Type: 
  Country: None (occurrence: None)
  Receive Date: 20080922
  Receipt Date: 20080911
  Transmission Date: 20090109
  Serious: Yes (Hospitalization)
  Sender: FDA-Public Use
  Company Number: CO-ROCHE-586519

PATIENT
  Sex: Female
  Weight: 54 kg

DRUGS (1)
  1. ROACCUTANE [Suspect]
     Indication: ACNE CYSTIC
     Route: 048
     Dates: start: 20080525

REACTIONS (1)
  - NEPHROLITHIASIS [None]
